FAERS Safety Report 8073470-8 (Version None)
Quarter: 2012Q1

REPORT INFORMATION
  Report Type: 
  Country: None (occurrence: None)
  Receive Date: 20120126
  Receipt Date: 20120126
  Transmission Date: 20120608
  Serious: Yes (Hospitalization)
  Sender: FDA-Public Use
  Company Number: None

PATIENT
  Age: 59 Year
  Sex: Male
  Weight: 81.6 kg

DRUGS (1)
  1. TRAMADOL HCL [Suspect]
     Dosage: 50.0 MG
     Route: 048

REACTIONS (4)
  - GRAND MAL CONVULSION [None]
  - FALL [None]
  - DIZZINESS [None]
  - JOINT INJURY [None]
